FAERS Safety Report 12582058 (Version 1)
Quarter: 2016Q3

REPORT INFORMATION
  Report Type: Spontaneous
  Country: US (occurrence: US)
  Receive Date: 20160722
  Receipt Date: 20160722
  Transmission Date: 20161109
  Serious: No
  Sender: FDA-Public Use
  Company Number: US-TEVA-661870USA

PATIENT
  Sex: Female

DRUGS (2)
  1. ABILIFY [Suspect]
     Active Substance: ARIPIPRAZOLE
     Route: 065
  2. ORAP [Suspect]
     Active Substance: PIMOZIDE
     Route: 065

REACTIONS (2)
  - Tachycardia [Unknown]
  - Tardive dyskinesia [Unknown]
